APPROVED DRUG PRODUCT: HALOPERIDOL
Active Ingredient: HALOPERIDOL
Strength: 5MG
Dosage Form/Route: TABLET;ORAL
Application: A216004 | Product #004 | TE Code: AB
Applicant: MSN LABORATORIES PRIVATE LTD
Approved: Nov 18, 2022 | RLD: No | RS: No | Type: RX